FAERS Safety Report 16810215 (Version 2)
Quarter: 2019Q3

REPORT INFORMATION
  Report Type: Spontaneous
  Country: US (occurrence: US)
  Receive Date: 20190916
  Receipt Date: 20190917
  Transmission Date: 20191005
  Serious: No
  Sender: FDA-Public Use
  Company Number: US-PFIZER INC-2019397839

PATIENT
  Age: 47 Year
  Sex: Male

DRUGS (1)
  1. SOMAVERT [Suspect]
     Active Substance: PEGVISOMANT
     Dosage: 10 MG, DAILY
     Dates: start: 20130409

REACTIONS (7)
  - Pain in extremity [Unknown]
  - Arthralgia [Not Recovered/Not Resolved]
  - Headache [Unknown]
  - Weight increased [Unknown]
  - Abdominal pain upper [Unknown]
  - Insulin-like growth factor increased [Unknown]
  - Back pain [Unknown]

NARRATIVE: CASE EVENT DATE: 20150721
